FAERS Safety Report 7969790-5 (Version None)
Quarter: 2011Q4

REPORT INFORMATION
  Report Type: 
  Country: None (occurrence: None)
  Receive Date: 20111122
  Receipt Date: 20110817
  Transmission Date: 20120403
  Serious: No
  Sender: FDA-Public Use
  Company Number: PHEH2011US01691

PATIENT
  Age: 46 Year
  Sex: Male

DRUGS (15)
  1. VITAMIN B1 TAB [Concomitant]
  2. NAPROXEN [Concomitant]
  3. BACLOFEN [Concomitant]
  4. LYRICA [Concomitant]
  5. FOLIC ACID [Concomitant]
  6. EFEXOR XR (VENLAFAXINE) [Concomitant]
  7. GEMFIBROZIL [Concomitant]
  8. ALPRAZOLAM [Concomitant]
  9. ENABLEX [Concomitant]
  10. VITAMIN B12 [Concomitant]
  11. GILENYA [Suspect]
     Dosage: 0.5 MG, QD
  12. XANAX [Concomitant]
  13. GABAPENTIN [Concomitant]
  14. VICODIN [Concomitant]
  15. ASPIRN (ACETYLSALICYLIC ACID) [Concomitant]

REACTIONS (3)
  - ARTHRALGIA [None]
  - MYALGIA [None]
  - PAIN IN EXTREMITY [None]
